FAERS Safety Report 7344910-4 (Version None)
Quarter: 2011Q1

REPORT INFORMATION
  Report Type: 
  Country: None (occurrence: None)
  Receive Date: 20110310
  Receipt Date: 20110228
  Transmission Date: 20110831
  Serious: Yes (Other)
  Sender: FDA-Public Use
  Company Number: US-PFIZER INC-2011043901

PATIENT
  Sex: Female

DRUGS (6)
  1. XANAX [Suspect]
  2. TYROSINE [Suspect]
  3. PENICILLIN [Suspect]
  4. VYTORIN [Suspect]
  5. EFFEXOR XR [Suspect]
  6. EFFEXOR [Suspect]
     Dosage: UNK

REACTIONS (11)
  - DRY MOUTH [None]
  - PANIC ATTACK [None]
  - INCORRECT DOSE ADMINISTERED [None]
  - FLUSHING [None]
  - HYPERSENSITIVITY [None]
  - INSOMNIA [None]
  - DIARRHOEA [None]
  - DEHYDRATION [None]
  - FEELING JITTERY [None]
  - DRUG INEFFECTIVE [None]
  - FEELING ABNORMAL [None]
